FAERS Safety Report 15643092 (Version 1)
Quarter: 2018Q4

REPORT INFORMATION
  Report Type: Spontaneous
  Country: US (occurrence: US)
  Receive Date: 20181114
  Receipt Date: 20181114
  Transmission Date: 20190205
  Serious: No
  Sender: FDA-Public Use
  Company Number: None

PATIENT
  Age: 67 Year
  Sex: Female

DRUGS (4)
  1. HYDROCHLORTHIAZIDE [Concomitant]
     Active Substance: HYDROCHLOROTHIAZIDE
  2. VERZENIO [Suspect]
     Active Substance: ABEMACICLIB
     Dates: start: 20181001
  3. ANASTRAZOLE [Concomitant]
     Active Substance: ANASTROZOLE
  4. CARVEDLOL [Concomitant]

REACTIONS (4)
  - Diarrhoea [None]
  - Decreased appetite [None]
  - White blood cell count decreased [None]
  - Weight decreased [None]

NARRATIVE: CASE EVENT DATE: 20181023
